FAERS Safety Report 21301685 (Version 2)
Quarter: 2022Q4

REPORT INFORMATION
  Report Type: Spontaneous
  Country: FR (occurrence: FR)
  Receive Date: 20220907
  Receipt Date: 20221011
  Transmission Date: 20230113
  Serious: Yes (Hospitalization, Other)
  Sender: FDA-Public Use
  Company Number: None

PATIENT
  Age: 34 Year
  Sex: Female

DRUGS (5)
  1. IMATINIB [Suspect]
     Active Substance: IMATINIB
     Indication: Chronic myeloid leukaemia
     Dosage: 400 MG
     Route: 065
     Dates: start: 20200212, end: 202005
  2. IMATINIB [Suspect]
     Active Substance: IMATINIB
     Route: 065
     Dates: start: 20200731, end: 20200915
  3. DASATINIB [Suspect]
     Active Substance: DASATINIB
     Indication: Chronic myeloid leukaemia
     Dosage: UNK
     Route: 065
     Dates: start: 20200505, end: 20200606
  4. PEGYLATED INTERFERON NOS [Suspect]
     Active Substance: PEGINTERFERON ALFA-2A OR PEGINTERFERON ALFA-2B OR PEGINTERFERON BETA-1A OR PEGINTERFERON LAMBDA-1A
     Indication: Product used for unknown indication
     Route: 065
  5. HYDROXYUREA [Suspect]
     Active Substance: HYDROXYUREA
     Indication: Product used for unknown indication
     Route: 065

REACTIONS (10)
  - Confusional state [Unknown]
  - Transaminases increased [Recovering/Resolving]
  - Muscle spasms [Unknown]
  - Hepatitis fulminant [Recovering/Resolving]
  - Asterixis [Unknown]
  - Exposure during pregnancy [Unknown]
  - Myopericarditis [Recovering/Resolving]
  - Fluid retention [Unknown]
  - Generalised oedema [Recovering/Resolving]
  - Intentional product use issue [Unknown]

NARRATIVE: CASE EVENT DATE: 20200718
